FAERS Safety Report 16881071 (Version 1)
Quarter: 2019Q4

REPORT INFORMATION
  Report Type: Spontaneous
  Country: US (occurrence: US)
  Receive Date: 20191003
  Receipt Date: 20191003
  Transmission Date: 20200122
  Serious: Yes (Life-Threatening, Hospitalization, Disabling, Other)
  Sender: FDA-Public Use
  Company Number: US-MSN LABORATORIES PRIVATE LIMITED-2075244

PATIENT
  Age: 82 Year
  Sex: Male

DRUGS (1)
  1. CAPECITABINE. [Suspect]
     Active Substance: CAPECITABINE
     Indication: PRODUCT USED FOR UNKNOWN INDICATION
     Route: 048

REACTIONS (18)
  - Apparent life threatening event [Recovering/Resolving]
  - Speech disorder [Recovering/Resolving]
  - Throat irritation [Recovering/Resolving]
  - Dyspepsia [Recovering/Resolving]
  - Oral mucosal blistering [Recovering/Resolving]
  - Atrial fibrillation [Recovering/Resolving]
  - Peripheral swelling [Recovering/Resolving]
  - Feeding disorder [Recovering/Resolving]
  - Oral discomfort [Recovering/Resolving]
  - Dementia [Recovering/Resolving]
  - Erythema [Recovering/Resolving]
  - Nausea [Recovering/Resolving]
  - Loss of personal independence in daily activities [Recovering/Resolving]
  - Body temperature increased [Recovering/Resolving]
  - Oesophageal pain [Recovering/Resolving]
  - Thrombosis [Recovering/Resolving]
  - Cardiovascular disorder [Recovering/Resolving]
  - Diarrhoea [Recovering/Resolving]
